FAERS Safety Report 8300803-7 (Version None)
Quarter: 2012Q2

REPORT INFORMATION
  Report Type: 
  Country: None (occurrence: None)
  Receive Date: 20120420
  Receipt Date: 20120418
  Transmission Date: 20120825
  Serious: Yes (Death, Hospitalization, Other)
  Sender: FDA-Public Use
  Company Number: PHHY2010IL07777

PATIENT
  Sex: Male

DRUGS (5)
  1. ATACAND [Concomitant]
     Dosage: 8 MG, UNK
  2. LAMISIL [Suspect]
     Indication: FUNGAL INFECTION
     Route: 048
     Dates: start: 20091109
  3. NORVASC [Concomitant]
     Dosage: 5 MG, UNK
  4. METFFORMIN HYDROCHLORIDE [Concomitant]
     Dosage: 850 MG, TID
  5. SIMVASTATIN [Concomitant]
     Dosage: 20 MG, UNK

REACTIONS (47)
  - HEPATIC FAILURE [None]
  - FEELING ABNORMAL [None]
  - HAEMATOCHEZIA [None]
  - HYPONATRAEMIA [None]
  - LEUKOPENIA [None]
  - ASTHENIA [None]
  - BLOOD PRESSURE ORTHOSTATIC [None]
  - RENAL FAILURE ACUTE [None]
  - GASTROINTESTINAL HAEMORRHAGE [None]
  - COMA [None]
  - HEPATIC STEATOSIS [None]
  - VANISHING BILE DUCT SYNDROME [None]
  - DECREASED APPETITE [None]
  - INFECTION [None]
  - BLOOD PRESSURE DECREASED [None]
  - HYPOALBUMINAEMIA [None]
  - BLOOD BILIRUBIN INCREASED [None]
  - FEBRILE NEUTROPENIA [None]
  - NEUTROPENIA [None]
  - APNOEA [None]
  - COUGH [None]
  - MULTI-ORGAN FAILURE [None]
  - PRURITUS [None]
  - HAEMATEMESIS [None]
  - CHOLESTASIS [None]
  - RESPIRATORY ACIDOSIS [None]
  - ACUTE MYOCARDIAL INFARCTION [None]
  - ATRIAL FIBRILLATION [None]
  - CHOLELITHIASIS [None]
  - JAUNDICE [None]
  - METABOLIC ACIDOSIS [None]
  - CHEST PAIN [None]
  - BLOOD CREATININE INCREASED [None]
  - CREATININE RENAL CLEARANCE DECREASED [None]
  - MALAISE [None]
  - HEPATITIS CHOLESTATIC [None]
  - OEDEMA DUE TO HEPATIC DISEASE [None]
  - DYSPNOEA [None]
  - BRADYCARDIA [None]
  - FATIGUE [None]
  - LIVER INJURY [None]
  - KLEBSIELLA BACTERAEMIA [None]
  - HYPERKALAEMIA [None]
  - ANAEMIA [None]
  - TROPONIN INCREASED [None]
  - HEART RATE DECREASED [None]
  - CARDIAC DISORDER [None]
